FAERS Safety Report 4313180-3 (Version None)
Quarter: 2004Q1

REPORT INFORMATION
  Report Type: 
  Country: None (occurrence: None)
  Receive Date: 20040308
  Receipt Date: 20040223
  Transmission Date: 20041129
  Serious: Yes (Hospitalization)
  Sender: FDA-Public Use
  Company Number: 200410729FR

PATIENT
  Age: 94 Year
  Sex: Female

DRUGS (6)
  1. TAVANIC [Suspect]
     Indication: BRONCHITIS
     Route: 048
     Dates: start: 20031111, end: 20031123
  2. LASILIX [Suspect]
     Indication: SUPERINFECTION
     Route: 048
     Dates: start: 20031119, end: 20031127
  3. MOPRAL [Suspect]
     Route: 048
     Dates: end: 20031203
  4. CALCIPARINE [Suspect]
     Dosage: DOSE UNIT: UNITS
     Route: 058
     Dates: start: 20031111, end: 20031201
  5. ASPIRIN [Concomitant]
     Route: 048
     Dates: start: 20031110, end: 20031204
  6. ISOPTIN [Concomitant]
     Route: 048
     Dates: start: 20031112

REACTIONS (2)
  - RENAL FAILURE ACUTE [None]
  - THROMBOCYTOPENIA [None]
